FAERS Safety Report 5738355-8 (Version None)
Quarter: 2008Q2

REPORT INFORMATION
  Report Type: 
  Country: None (occurrence: None)
  Receive Date: 20080514
  Receipt Date: 20080506
  Transmission Date: 20081010
  Serious: Yes (Hospitalization, Other)
  Sender: FDA-Public Use
  Company Number: US-AMGEN-QUU276576

PATIENT
  Sex: Female

DRUGS (3)
  1. ENBREL [Suspect]
     Indication: RHEUMATOID ARTHRITIS
     Route: 058
     Dates: start: 20041125
  2. ENBREL [Suspect]
     Indication: PSORIATIC ARTHROPATHY
  3. BISPHOSPHONATE [Concomitant]

REACTIONS (4)
  - FIBULA FRACTURE [None]
  - OPEN FRACTURE [None]
  - OSTEOPENIA [None]
  - OSTEOPOROSIS [None]
